FAERS Safety Report 6547202-6 (Version None)
Quarter: 2010Q1

REPORT INFORMATION
  Report Type: 
  Country: None (occurrence: None)
  Receive Date: 20100122
  Receipt Date: 20100112
  Transmission Date: 20100710
  Serious: Yes (Hospitalization)
  Sender: FDA-Public Use
  Company Number: CN-ELI_LILLY_AND_COMPANY-CN200912004459

PATIENT
  Age: 44 Year
  Sex: Male
  Weight: 63 kg

DRUGS (5)
  1. PRASUGREL HYDROCHLORIDE [Suspect]
     Indication: ACUTE CORONARY SYNDROME
     Dosage: 30 MG, LOADING DOSE
     Route: 048
     Dates: start: 20090927
  2. PRASUGREL HYDROCHLORIDE [Suspect]
     Dosage: 7.5 MG, MAINTENANCE DOSE
     Route: 048
     Dates: start: 20090928
  3. ASPIRIN [Concomitant]
     Dates: start: 20090927
  4. PRAVASTATIN SODIUM [Concomitant]
     Dates: start: 20090927
  5. TRIMETAZIDINE DIHYDROCHLORIDE [Concomitant]
     Indication: ANGINA PECTORIS
     Dates: start: 20090927

REACTIONS (1)
  - VENTRICULAR EXTRASYSTOLES [None]
